FAERS Safety Report 5320874-X (Version None)
Quarter: 2007Q2

REPORT INFORMATION
  Report Type: 
  Country: None (occurrence: None)
  Receive Date: 20070504
  Receipt Date: 20070425
  Transmission Date: 20071010
  Serious: Yes (Other)
  Sender: FDA-Public Use
  Company Number: US019976

PATIENT
  Age: 73 Year
  Sex: Male

DRUGS (1)
  1. TRISENOX [Suspect]
     Indication: ACUTE PROMYELOCYTIC LEUKAEMIA
     Dosage: 7.5 MG QD INTRAVENOUS DRIP
     Route: 041
     Dates: start: 20070118, end: 20070211

REACTIONS (1)
  - SENSORY DISTURBANCE [None]
